FAERS Safety Report 18578535 (Version 1)
Quarter: 2020Q4

REPORT INFORMATION
  Report Type: Spontaneous
  Country: US (occurrence: US)
  Receive Date: 20201202
  Receipt Date: 20201202
  Transmission Date: 20210114
  Serious: Yes (Other)
  Sender: FDA-Public Use
  Company Number: None

PATIENT
  Age: 17 Year
  Sex: Female
  Weight: 68.6 kg

DRUGS (1)
  1. LAMOTRIGINE 100MG [Suspect]
     Active Substance: LAMOTRIGINE
     Indication: EPILEPSY
     Route: 048
     Dates: start: 20100528, end: 20111109

REACTIONS (4)
  - Fatigue [None]
  - Eye movement disorder [None]
  - Eyelid myoclonus [None]
  - Dizziness [None]

NARRATIVE: CASE EVENT DATE: 20100528
